FAERS Safety Report 11828187 (Version 1)
Quarter: 2015Q4

REPORT INFORMATION
  Report Type: Spontaneous
  Country: DE (occurrence: DE)
  Receive Date: 20151211
  Receipt Date: 20151211
  Transmission Date: 20160305
  Serious: Yes (Other)
  Sender: FDA-Public Use
  Company Number: DE-GLAXOSMITHKLINE-DE2015GSK175193

PATIENT
  Age: 51 Year
  Sex: Male
  Weight: 84 kg

DRUGS (1)
  1. ACICLOVIR [Suspect]
     Active Substance: ACYCLOVIR
     Indication: HERPES SIMPLEX
     Dosage: 400 MG, U
     Route: 048
     Dates: start: 201207

REACTIONS (3)
  - Metastases to liver [Unknown]
  - Carcinoid tumour of the caecum [Recovered/Resolved with Sequelae]
  - Immune system disorder [Unknown]

NARRATIVE: CASE EVENT DATE: 20141110
